FAERS Safety Report 21258805 (Version 1)
Quarter: 2022Q3

REPORT INFORMATION
  Report Type: Spontaneous
  Country: JP (occurrence: JP)
  Receive Date: 20220826
  Receipt Date: 20220826
  Transmission Date: 20221027
  Serious: Yes (Hospitalization)
  Sender: FDA-Public Use
  Company Number: JP-PFIZER INC-202201088370

PATIENT
  Sex: Female

DRUGS (2)
  1. CORTRIL [Suspect]
     Active Substance: HYDROCORTISONE
     Dosage: HALF TABLET
     Route: 048
  2. CORTRIL [Suspect]
     Active Substance: HYDROCORTISONE
     Dosage: 1 AND A HALF TABLETS IN THE MORNING AND 1 TABLET AT NIGHT
     Route: 048

REACTIONS (4)
  - Hyponatraemia [Unknown]
  - Hypoglycaemia [Unknown]
  - Arthritis [Unknown]
  - Drug ineffective [Unknown]
